FAERS Safety Report 23487276 (Version 1)
Quarter: 2024Q1

REPORT INFORMATION
  Report Type: Spontaneous
  Country: US (occurrence: US)
  Receive Date: 20240206
  Receipt Date: 20240206
  Transmission Date: 20240410
  Serious: Yes (Other)
  Sender: FDA-Public Use
  Company Number: US-INTRA-CELLULAR THERAPIES, INC.-2024ICT00125

PATIENT
  Age: 29 Year
  Sex: Female
  Weight: 86.168 kg

DRUGS (5)
  1. CAPLYTA [Suspect]
     Active Substance: LUMATEPERONE
     Indication: Bipolar disorder
     Dosage: UNK  ^AT 7 PM^ ONCE
  2. PROPRANOLOL [Concomitant]
     Active Substance: PROPRANOLOL HYDROCHLORIDE
  3. KLONOPIN [Concomitant]
     Active Substance: CLONAZEPAM
  4. WELLBUTRIN [Concomitant]
     Active Substance: BUPROPION HYDROCHLORIDE
  5. UNSPECIFIED ALLERGY MEDICATIONS [Concomitant]

REACTIONS (6)
  - Hemiparaesthesia [Not Recovered/Not Resolved]
  - Hypotension [Unknown]
  - Electrocardiogram abnormal [Unknown]
  - Fall [Recovered/Resolved]
  - Headache [Unknown]
  - Dizziness [Unknown]
